FAERS Safety Report 8821712 (Version 3)
Quarter: 2012Q4

REPORT INFORMATION
  Report Type: 
  Country: US (occurrence: US)
  Receive Date: 20121002
  Receipt Date: 20121026
  Transmission Date: 20130627
  Serious: No
  Sender: FDA-Public Use
  Company Number: US-VERTEX PHARMACEUTICAL INC.-2012-020837

PATIENT
  Age: 44 Year
  Sex: Female
  Weight: 83 kg

DRUGS (4)
  1. VX-950 [Suspect]
     Indication: HEPATITIS C
     Dosage: 750 mg, tid
     Route: 048
     Dates: start: 20120904
  2. PEGASYS [Suspect]
     Indication: HEPATITIS C
     Dosage: 180 ?g, UNK
     Route: 058
     Dates: start: 20120904
  3. COPEGUS [Concomitant]
     Indication: HEPATITIS C
     Dosage: 3 pills in AM, 2 pills in PM, qd
     Route: 048
     Dates: start: 20120904
  4. CELEXA                             /00582602/ [Concomitant]
     Indication: DEPRESSION
     Dosage: 20 mg, qd
     Route: 048

REACTIONS (6)
  - Anxiety [Recovered/Resolved]
  - Insomnia [Recovered/Resolved]
  - Pain [Recovered/Resolved]
  - Fatigue [Not Recovered/Not Resolved]
  - Rash erythematous [Recovered/Resolved]
  - Pruritus [Recovered/Resolved]
